FAERS Safety Report 5939642-0 (Version None)
Quarter: 2008Q4

REPORT INFORMATION
  Report Type: 
  Country: None (occurrence: None)
  Receive Date: 20081030
  Receipt Date: 20081030
  Transmission Date: 20090506
  Serious: Yes (Life-Threatening, Disabling, Other)
  Sender: FDA-Public Use
  Company Number: None

PATIENT
  Age: 59 Year
  Sex: Female
  Weight: 65.7716 kg

DRUGS (3)
  1. LOTREL [Suspect]
     Indication: BLOOD PRESSURE
     Dates: start: 20081011, end: 20081022
  2. MIRAPEX [Suspect]
     Indication: ANTIDEPRESSANT THERAPY
     Dates: start: 20081011, end: 20081022
  3. REMERON [Suspect]
     Indication: ANTIDEPRESSANT THERAPY
     Dates: start: 20081018

REACTIONS (8)
  - DEPRESSION [None]
  - HYPERSENSITIVITY [None]
  - OEDEMA PERIPHERAL [None]
  - OVERDOSE [None]
  - PAIN [None]
  - PULMONARY THROMBOSIS [None]
  - SUICIDAL IDEATION [None]
  - SUICIDE ATTEMPT [None]
